FAERS Safety Report 11545802 (Version 2)
Quarter: 2015Q3

REPORT INFORMATION
  Report Type: Report from Study
  Country: HR (occurrence: HR)
  Receive Date: 20150924
  Receipt Date: 20150928
  Transmission Date: 20151125
  Serious: Yes (Death, Other)
  Sender: FDA-Public Use
  Company Number: HR-GLAXOSMITHKLINE-HR2015GSK134102

PATIENT
  Age: 55 Year
  Sex: Male
  Weight: 90 kg

DRUGS (6)
  1. ZELBORAF [Concomitant]
     Active Substance: VEMURAFENIB
     Indication: MALIGNANT MELANOMA
     Dosage: UNK
     Route: 048
     Dates: start: 201502, end: 201504
  2. TRAMETINIB [Suspect]
     Active Substance: TRAMETINIB
     Indication: METASTATIC MALIGNANT MELANOMA
     Dosage: 2 MG, UNK
     Route: 048
     Dates: start: 20150415, end: 20150901
  3. DABRAFENIB [Suspect]
     Active Substance: DABRAFENIB
     Indication: METASTATIC MALIGNANT MELANOMA
     Dosage: 150 MG, UNK
     Route: 048
     Dates: start: 20150415, end: 20150901
  4. DEXAMETHASONE. [Concomitant]
     Active Substance: DEXAMETHASONE
     Indication: VOMITING
     Dosage: 8 MG, QD
     Route: 042
     Dates: start: 20150904, end: 20150914
  5. METOCLOPRAMIDE. [Concomitant]
     Active Substance: METOCLOPRAMIDE
     Indication: NAUSEA
     Dosage: 10 MG, QD
     Dates: start: 20150904, end: 20150914
  6. RANITIDINE [Concomitant]
     Active Substance: RANITIDINE\RANITIDINE HYDROCHLORIDE
     Indication: NAUSEA
     Dosage: 50 MG, QD
     Route: 042
     Dates: start: 20150904, end: 20150914

REACTIONS (5)
  - Metastases to peritoneum [Unknown]
  - Drug ineffective [Unknown]
  - Ascites [Unknown]
  - Metastases to bone [Unknown]
  - Disease progression [Fatal]

NARRATIVE: CASE EVENT DATE: 20150904
